FAERS Safety Report 24092637 (Version 1)
Quarter: 2024Q3

REPORT INFORMATION
  Report Type: Spontaneous
  Country: FR (occurrence: None)
  Receive Date: 20240715
  Receipt Date: 20240715
  Transmission Date: 20241017
  Serious: Yes (Other)
  Sender: ASTRAZENECA
  Company Number: 2024A160539

PATIENT
  Age: 61 Year
  Sex: Male

DRUGS (1)
  1. DURVALUMAB [Suspect]
     Active Substance: DURVALUMAB
     Indication: Non-small cell lung cancer
     Dosage: 10 MG/KG Q2W
     Dates: start: 20211218, end: 20221229

REACTIONS (8)
  - Malignant neoplasm progression [Unknown]
  - Hepatic cytolysis [Unknown]
  - Haematotoxicity [Unknown]
  - Neutropenia [Unknown]
  - Asthenia [Unknown]
  - Nausea [Unknown]
  - Vomiting [Unknown]
  - Constipation [Unknown]
